FAERS Safety Report 8174091-9 (Version None)
Quarter: 2012Q1

REPORT INFORMATION
  Report Type: 
  Country: None (occurrence: None)
  Receive Date: 20120229
  Receipt Date: 20120222
  Transmission Date: 20120608
  Serious: Yes (Hospitalization)
  Sender: FDA-Public Use
  Company Number: HR-ROCHE-1042263

PATIENT
  Age: 57 Year
  Sex: Female

DRUGS (2)
  1. LEVOTHYROXINE SODIUM [Concomitant]
     Indication: THYROIDECTOMY
     Route: 048
     Dates: start: 19980101
  2. CLONAZEPAM [Suspect]
     Indication: MYOCLONUS
     Route: 048
     Dates: start: 20090717, end: 20090810

REACTIONS (8)
  - VERTIGO [None]
  - CENTRAL NERVOUS SYSTEM LESION [None]
  - WALKING DISABILITY [None]
  - TONGUE PARALYSIS [None]
  - VISUAL IMPAIRMENT [None]
  - FEELING ABNORMAL [None]
  - SLOW SPEECH [None]
  - SPEECH DISORDER [None]
